FAERS Safety Report 6767625-X (Version None)
Quarter: 2010Q2

REPORT INFORMATION
  Report Type: 
  Country: None (occurrence: None)
  Receive Date: 20100614
  Receipt Date: 20100601
  Transmission Date: 20101027
  Serious: Yes (Hospitalization, Other)
  Sender: FDA-Public Use
  Company Number: US-ELI_LILLY_AND_COMPANY-US200911002945

PATIENT
  Sex: Female

DRUGS (1)
  1. FORTEO [Suspect]
     Dates: start: 20090903, end: 20091101

REACTIONS (3)
  - LOCALISED INFECTION [None]
  - MEDICAL DEVICE COMPLICATION [None]
  - SEPSIS [None]
